FAERS Safety Report 21756589 (Version 1)
Quarter: 2022Q4

REPORT INFORMATION
  Report Type: Spontaneous
  Country: IT (occurrence: None)
  Receive Date: 20221220
  Receipt Date: 20221220
  Transmission Date: 20230112
  Serious: Yes (Other)
  Sender: FDA-Public Use
  Company Number: 2022A402006

PATIENT
  Age: 78 Year
  Sex: Female
  Weight: 65 kg

DRUGS (11)
  1. TAGRISSO [Suspect]
     Active Substance: OSIMERTINIB
     Indication: Lung adenocarcinoma
     Dosage: DOSAGE: 80 MEASURING UNIT: MILLIGRAMS ADMINISTRATION FREQUENCY: CICLICA VIA ADMINISTRATION: ORAL
     Route: 048
     Dates: start: 20221110, end: 20221113
  2. FLUTICASONE FUROATE\VILANTEROL TRIFENATATE [Concomitant]
     Active Substance: FLUTICASONE FUROATE\VILANTEROL TRIFENATATE
     Dosage: ROUTE OF ADMINISTRATION: ORAL
     Route: 048
  3. ACETHYLCYSTEINE [Concomitant]
     Dosage: ROUTE OF ADMINISTRATION: ORAL
     Route: 048
  4. FLIDERINA [Concomitant]
     Dosage: DOSAGE: 150 MEASURING UNIT: MILLIGRAMS VIA ADMINISTRATION: ORAL
     Route: 048
  5. LERCANIDIPINE HYDROCHLORIDE [Concomitant]
     Active Substance: LERCANIDIPINE HYDROCHLORIDE
     Dosage: DOSAGE: 10 MEASURING UNIT: MILLIGRAMS VIA ADMINISTRATION: ORAL
     Route: 048
  6. CARDURA [Concomitant]
     Active Substance: DOXAZOSIN MESYLATE
     Dosage: DOSAGE: 4 MEASUREMENT UNIT: MILLIGRAMS VIA ADMINISTRATION: ORAL
     Route: 048
  7. LEVOTHYROXINE SODIUM [Concomitant]
     Active Substance: LEVOTHYROXINE SODIUM
     Dosage: ROUTE OF ADMINISTRATION: ORAL
     Route: 048
  8. BISPROLOL DOC [Concomitant]
     Dosage: ASSAY: 2.5 UNIT OF MEASUREMENT: MILLIGRAMS VIA ADMINISTRATION: ORAL
     Route: 048
  9. EZETIMIBE\ROSUVASTATIN [Concomitant]
     Active Substance: EZETIMIBE\ROSUVASTATIN
     Dosage: DOSAGE: 10 MEASURING UNIT: MILLIGRAMS VIA ADMINISTRATION: ORAL
     Route: 048
  10. OLMESARTAN MEDOXOMIL [Concomitant]
     Active Substance: OLMESARTAN MEDOXOMIL
     Dosage: DOSAGE: 40 MEASURING UNIT: MILLIGRAMS VIA ADMINISTRATION: ORAL
     Route: 048
  11. MONTELUKAST [Concomitant]
     Active Substance: MONTELUKAST SODIUM
     Dosage: ROUTE OF ADMINISTRATION: ORAL
     Route: 048

REACTIONS (3)
  - Petechiae [Recovered/Resolved]
  - Erythema [Recovered/Resolved]
  - Pruritus [Recovered/Resolved]

NARRATIVE: CASE EVENT DATE: 20221110
